FAERS Safety Report 16089482 (Version 3)
Quarter: 2024Q2

REPORT INFORMATION
  Report Type: Spontaneous
  Country: US (occurrence: US)
  Receive Date: 20190319
  Receipt Date: 20240624
  Transmission Date: 20240715
  Serious: No
  Sender: FDA-Public Use
  Company Number: US-SA-2019SA066656

PATIENT
  Sex: Female

DRUGS (1)
  1. DUPIXENT [Suspect]
     Active Substance: DUPILUMAB
     Indication: Dermatitis atopic
     Dosage: 300 MG, QOW
     Route: 058
     Dates: start: 201901, end: 201903

REACTIONS (6)
  - Vision blurred [Unknown]
  - Visual impairment [Unknown]
  - Visual midline shift syndrome [Unknown]
  - Conjunctivitis [Unknown]
  - Eye pruritus [Unknown]
  - Periorbital swelling [Unknown]
